FAERS Safety Report 22020094 (Version 2)
Quarter: 2023Q1

REPORT INFORMATION
  Report Type: Spontaneous
  Country: US (occurrence: US)
  Receive Date: 20230222
  Receipt Date: 20230313
  Transmission Date: 20230417
  Serious: Yes (Life-Threatening, Hospitalization, Other)
  Sender: FDA-Public Use
  Company Number: US-Accord-301552

PATIENT
  Age: 41 Year
  Sex: Female

DRUGS (5)
  1. CLOZAPINE [Interacting]
     Active Substance: CLOZAPINE
     Indication: Schizoaffective disorder
     Dosage: 100 MG ORAL IN THE MORNING AND 400 MG ORAL AT BEDTIME
  2. DILTIAZEM [Interacting]
     Active Substance: DILTIAZEM
     Indication: Hypertension
     Dosage: DOSAGE FORM-CONTROLLED DELIVERY
  3. FLUOXETINE [Interacting]
     Active Substance: FLUOXETINE HYDROCHLORIDE
     Indication: Bipolar disorder
  4. CLOZAPINE [Interacting]
     Active Substance: CLOZAPINE
     Indication: Suicidal ideation
     Dosage: 500 MG IN DIVIDED DOSES, 100 MG ORAL IN THE MORNING AND 400 MG ORAL AT BEDTIME
     Route: 048
  5. CLOZAPINE [Interacting]
     Active Substance: CLOZAPINE
     Indication: Suicidal ideation
     Dosage: 500 MG IN DIVIDED DOSES, 100 MG ORAL IN THE MORNING AND 400 MG ORAL AT BEDTIME

REACTIONS (7)
  - Drug level increased [Recovered/Resolved]
  - Ventricular extrasystoles [Recovered/Resolved]
  - Toxicity to various agents [Unknown]
  - Electrocardiogram QT prolonged [Recovered/Resolved]
  - Tachycardia [Recovered/Resolved]
  - Drug interaction [Unknown]
  - Torsade de pointes [Recovered/Resolved]
